FAERS Safety Report 8674269 (Version 3)
Quarter: 2013Q4

REPORT INFORMATION
  Report Type: Spontaneous
  Country: FR (occurrence: FR)
  Receive Date: 20120719
  Receipt Date: 20131223
  Transmission Date: 20140711
  Serious: Yes (Hospitalization, Other)
  Sender: FDA-Public Use
  Company Number: FR-GILEAD-2012-0058148

PATIENT
  Age: 31 Year
  Sex: Female

DRUGS (7)
  1. TRUVADA [Suspect]
     Indication: HIV TEST POSITIVE
     Dosage: 1 DF, QD
     Dates: start: 20111222, end: 20130906
  2. TRUVADA [Suspect]
     Dosage: 1 DF, QD
     Route: 065
     Dates: start: 20131122
  3. PREZISTA [Suspect]
     Indication: HIV TEST POSITIVE
     Dosage: 400 MG, BID
     Dates: start: 20120426, end: 20130906
  4. PREZISTA [Suspect]
     Dosage: 400 MG, BID
     Route: 065
     Dates: start: 20131122
  5. NORVIR [Suspect]
     Indication: HIV TEST POSITIVE
     Dosage: 100 MG, QD
     Dates: start: 20120426, end: 20130906
  6. NORVIR [Suspect]
     Dosage: 100 MG, QD
     Route: 065
     Dates: start: 20131122
  7. ISENTRESS [Concomitant]
     Indication: PRODUCT USED FOR UNKNOWN INDICATION
     Dosage: UNK
     Dates: end: 201205

REACTIONS (2)
  - Epilepsy [Not Recovered/Not Resolved]
  - Partial seizures [Not Recovered/Not Resolved]
